FAERS Safety Report 16036119 (Version 2)
Quarter: 2019Q1

REPORT INFORMATION
  Report Type: Spontaneous
  Country: US (occurrence: US)
  Receive Date: 20190305
  Receipt Date: 20190326
  Transmission Date: 20190418
  Serious: Yes (Hospitalization)
  Sender: FDA-Public Use
  Company Number: US-GW PHARMA-201902USGW0480

PATIENT

DRUGS (3)
  1. EPIDIOLEX [Suspect]
     Active Substance: CANNABIDIOL
     Dosage: 690 MILLIGRAM, BID
     Route: 048
     Dates: start: 201902
  2. APTIOM [Concomitant]
     Active Substance: ESLICARBAZEPINE ACETATE
     Indication: PRODUCT USED FOR UNKNOWN INDICATION
     Dosage: UNK (STOP DATE: 25 JAN 2019)
     Route: 065
  3. EPIDIOLEX [Suspect]
     Active Substance: CANNABIDIOL
     Indication: LENNOX-GASTAUT SYNDROME
     Dosage: 560 MILLIGRAM, BID
     Route: 048
     Dates: start: 20190125, end: 201902

REACTIONS (5)
  - Change in seizure presentation [Unknown]
  - Weight decreased [Unknown]
  - Decreased appetite [Unknown]
  - Seizure [Unknown]
  - Simple partial seizures [Unknown]

NARRATIVE: CASE EVENT DATE: 2019
